FAERS Safety Report 8129563 (Version 4)
Quarter: 2013Q2

REPORT INFORMATION
  Report Type: Report from Study
  Country: GB (occurrence: GB)
  Receive Date: 20110909
  Receipt Date: 20130502
  Transmission Date: 20140414
  Serious: Yes (Life-Threatening, Hospitalization, Other)
  Sender: FDA-Public Use
  Company Number: GB-BRISTOL-MYERS SQUIBB COMPANY-16001778

PATIENT
  Age: 77 Year
  Sex: Male
  Weight: 86.7 kg

DRUGS (6)
  1. SPRYCEL [Suspect]
     Indication: CHRONIC MYELOID LEUKAEMIA
     Dosage: DISCONTINUED ON 30AUG2011
     Route: 048
     Dates: start: 20110805, end: 20110830
  2. ACETYLSALICYLIC ACID [Suspect]
     Indication: TRANSIENT ISCHAEMIC ATTACK
     Route: 048
     Dates: start: 20110816
  3. SIMVASTATIN [Concomitant]
     Indication: BLOOD CHOLESTEROL DECREASED
     Route: 048
     Dates: start: 2007
  4. RANITIDINE [Concomitant]
     Indication: HYPERSENSITIVITY
     Route: 048
  5. RAMIPRIL [Concomitant]
     Indication: HYPOTENSION
     Route: 048
     Dates: start: 2011
  6. ALLOPURINOL [Concomitant]
     Indication: ANTIFUNGAL TREATMENT
     Dosage: JUL11
     Route: 048
     Dates: start: 2011

REACTIONS (6)
  - Cardiac tamponade [Recovered/Resolved]
  - Multi-organ failure [Recovering/Resolving]
  - Gastrointestinal haemorrhage [Recovering/Resolving]
  - Pericarditis [Recovering/Resolving]
  - Pericardial effusion [Recovering/Resolving]
  - Pleural effusion [Recovering/Resolving]
